FAERS Safety Report 10101189 (Version 1)
Quarter: 2014Q2

REPORT INFORMATION
  Report Type: Spontaneous
  Country: FR (occurrence: None)
  Receive Date: 20140422
  Receipt Date: 20140422
  Transmission Date: 20141212
  Serious: Yes (Death, Hospitalization, Other)
  Sender: FDA-Public Use
  Company Number: 2014000111

PATIENT
  Age: 84 Year
  Sex: Male

DRUGS (4)
  1. ACEON [Suspect]
     Indication: CARDIAC FAILURE
     Route: 048
     Dates: end: 20080509
  2. LASILIX [Suspect]
     Indication: CARDIAC FAILURE
     Route: 048
  3. XATRAL [Suspect]
     Indication: PRODUCT USED FOR UNKNOWN INDICATION
     Route: 048
     Dates: end: 20080509
  4. ALDACTONE [Suspect]
     Indication: PRODUCT USED FOR UNKNOWN INDICATION
     Route: 048
     Dates: end: 20080510

REACTIONS (13)
  - Cholangiocarcinoma [None]
  - Suicidal ideation [None]
  - Depression [None]
  - General physical health deterioration [None]
  - Hepatitis cholestatic [None]
  - Hypoalbuminaemia [None]
  - Aortic stenosis [None]
  - Mitral valve incompetence [None]
  - Arrhythmia [None]
  - Atrial fibrillation [None]
  - Hepatic failure [None]
  - Hepatic encephalopathy [None]
  - Agitation [None]
